FAERS Safety Report 8875345 (Version 1)
Quarter: 2012Q4

REPORT INFORMATION
  Report Type: 
  Country: CN (occurrence: CN)
  Receive Date: 20121029
  Receipt Date: 20121029
  Transmission Date: 20130627
  Serious: Yes (Other)
  Sender: FDA-Public Use
  Company Number: CN-SANOFI-AVENTIS-2012SA076798

PATIENT
  Age: 47 Year
  Sex: Female
  Weight: 60 kg

DRUGS (5)
  1. STILNOX [Suspect]
     Indication: SLEEP DISORDER
     Dosage: strength: 10mg
     Route: 048
     Dates: start: 201207
  2. STILNOX [Interacting]
     Indication: ANXIETY
     Dosage: strength: 10mg
     Route: 048
     Dates: start: 201207
  3. WARFARIN [Interacting]
     Indication: PHLEBOTHROMBOSIS
     Route: 048
  4. ZOLOFT [Concomitant]
     Route: 048
  5. CLONAZEPAM [Concomitant]
     Route: 048

REACTIONS (9)
  - Weight decreased [Not Recovered/Not Resolved]
  - Drug eruption [Not Recovered/Not Resolved]
  - Erythema [Not Recovered/Not Resolved]
  - Skin discolouration [Not Recovered/Not Resolved]
  - Pruritus [Not Recovered/Not Resolved]
  - Drug interaction [Not Recovered/Not Resolved]
  - Pain in extremity [Not Recovered/Not Resolved]
  - Muscular weakness [Not Recovered/Not Resolved]
  - Retching [Not Recovered/Not Resolved]
